FAERS Safety Report 4315444-6 (Version None)
Quarter: 2004Q1

REPORT INFORMATION
  Report Type: 
  Country: None (occurrence: None)
  Receive Date: 20040309
  Receipt Date: 20040219
  Transmission Date: 20041129
  Serious: Yes (Other)
  Sender: FDA-Public Use
  Company Number: US_010667841

PATIENT
  Age: 62 Year
  Sex: Female
  Weight: 98 kg

DRUGS (4)
  1. HUMATROPE [Suspect]
     Indication: HYPOPITUITARISM
     Dosage: 0.6 MG/DAY
     Dates: start: 19991201, end: 20040216
  2. HYDROCORTISONE [Concomitant]
  3. ESTRATEST [Concomitant]
  4. LEVOTHYROXINE SODIUM [Concomitant]

REACTIONS (19)
  - ACCIDENT [None]
  - ARTHRALGIA [None]
  - ASTHENIA [None]
  - BACK DISORDER [None]
  - BRAIN DAMAGE [None]
  - CARPAL TUNNEL SYNDROME [None]
  - COGNITIVE DISORDER [None]
  - CONFUSIONAL STATE [None]
  - DISTURBANCE IN ATTENTION [None]
  - EYE DISORDER [None]
  - MEDICATION ERROR [None]
  - MEMORY IMPAIRMENT [None]
  - MUSCULOSKELETAL DISCOMFORT [None]
  - MUSCULOSKELETAL STIFFNESS [None]
  - MYALGIA [None]
  - OVERDOSE [None]
  - PAIN IN EXTREMITY [None]
  - TRAUMATIC BRAIN INJURY [None]
  - VISUAL FIELD DEFECT [None]
